FAERS Safety Report 4300890-7 (Version None)
Quarter: 2004Q1

REPORT INFORMATION
  Report Type: 
  Country: None (occurrence: None)
  Receive Date: 20040220
  Receipt Date: 20030130
  Transmission Date: 20041129
  Serious: Yes (Hospitalization, Disabling)
  Sender: FDA-Public Use
  Company Number: WAES 0302USA00127

PATIENT
  Age: 48 Year
  Sex: Female
  Weight: 73 kg

DRUGS (15)
  1. [THERAPY UNSPECIFIED] [Concomitant]
  2. ASCORBIC ACID [Concomitant]
  3. CALCIUM (UNSPECIFIED) [Concomitant]
  4. LANOXIN [Concomitant]
  5. PREMARIN [Concomitant]
     Dates: start: 19850101, end: 20020901
  6. LASIX [Concomitant]
     Dates: start: 19981211
  7. GINKGO BILOBA EXTRACT [Concomitant]
     Dates: start: 19990101, end: 20000101
  8. LEVOCARNITINE [Concomitant]
  9. PRINIVIL [Concomitant]
     Route: 048
     Dates: start: 19981101, end: 20001001
  10. MAGNESIUM (UNSPECIFIED) [Concomitant]
  11. PAMELOR [Concomitant]
  12. VIOXX [Suspect]
     Indication: MERALGIA PARAESTHETICA
     Route: 048
     Dates: start: 20000110, end: 20000329
  13. VITAMIN B (UNSPECIFIED) [Concomitant]
  14. VITAMIN E [Concomitant]
  15. COUMADIN [Concomitant]
     Indication: CEREBROVASCULAR ACCIDENT
     Dates: start: 19981223

REACTIONS (18)
  - ANGIOPATHY [None]
  - ANXIETY [None]
  - ASTHENIA [None]
  - BLOOD CHOLESTEROL INCREASED [None]
  - BUNDLE BRANCH BLOCK LEFT [None]
  - CARDIAC FAILURE CONGESTIVE [None]
  - CHEST PAIN [None]
  - CONGESTIVE CARDIOMYOPATHY [None]
  - DEPRESSION [None]
  - DIZZINESS [None]
  - DYSPEPSIA [None]
  - DYSPNOEA [None]
  - FIBROADENOMA OF BREAST [None]
  - HYPERTENSION [None]
  - MOOD SWINGS [None]
  - NIGHTMARE [None]
  - PALPITATIONS [None]
  - VENTRICULAR EXTRASYSTOLES [None]
